FAERS Safety Report 5410335-1 (Version None)
Quarter: 2007Q3

REPORT INFORMATION
  Report Type: 
  Country: None (occurrence: None)
  Receive Date: 20070808
  Receipt Date: 20070723
  Transmission Date: 20080115
  Serious: Yes (Other)
  Sender: FDA-Public Use
  Company Number: DSJ-2007-04937

PATIENT
  Age: 57 Year
  Sex: Female
  Weight: 53 kg

DRUGS (4)
  1. OLMESARTAN MEDOXOMIL [Suspect]
     Indication: HYPERTENSION
     Dosage: 20 MG (20 MG, 1 IN 1 D), PER ORAL
     Route: 048
     Dates: start: 20040703, end: 20070615
  2. NATRIX (INDAPAMIDE) (TABLET) (INDAPAMIDE) [Concomitant]
  3. CARDENALIN (DOXAZOSIN MESILATE) (TABLET) (DOXAZOSIN) [Concomitant]
  4. VITAMEDIN (CAPSULE) [Concomitant]

REACTIONS (17)
  - CELL MARKER INCREASED [None]
  - COUGH [None]
  - DIZZINESS [None]
  - FEELING ABNORMAL [None]
  - HEADACHE [None]
  - HYPOTENSION [None]
  - INCREASED UPPER AIRWAY SECRETION [None]
  - INTERSTITIAL LUNG DISEASE [None]
  - MALAISE [None]
  - MUSCULOSKELETAL CHEST PAIN [None]
  - PHARYNGOLARYNGEAL PAIN [None]
  - PLEURAL EFFUSION [None]
  - PRODUCTIVE COUGH [None]
  - PRURITUS [None]
  - RHINORRHOEA [None]
  - SPUTUM DISCOLOURED [None]
  - STOMATITIS [None]
